FAERS Safety Report 9992964 (Version 1)
Quarter: 2014Q1

REPORT INFORMATION
  Report Type: Report from Study
  Country: US (occurrence: US)
  Receive Date: 20140310
  Receipt Date: 20140310
  Transmission Date: 20141002
  Serious: No
  Sender: FDA-Public Use
  Company Number: US-ABBVIE-14P-163-1201720-00

PATIENT
  Age: 19 Year
  Sex: Female
  Weight: 85.81 kg

DRUGS (1)
  1. LUPRON DEPOT [Suspect]
     Indication: ENDOMETRIOSIS
     Route: 030
     Dates: start: 201311

REACTIONS (5)
  - Sensory disturbance [Not Recovered/Not Resolved]
  - Mood swings [Not Recovered/Not Resolved]
  - Impatience [Not Recovered/Not Resolved]
  - Anger [Not Recovered/Not Resolved]
  - Headache [Not Recovered/Not Resolved]
